FAERS Safety Report 8834104 (Version 2)
Quarter: 2013Q1

REPORT INFORMATION
  Report Type: Spontaneous
  Country: US (occurrence: US)
  Receive Date: 20121010
  Receipt Date: 20130107
  Transmission Date: 20140127
  Serious: Yes (Hospitalization, Other)
  Sender: FDA-Public Use
  Company Number: US-009507513-1210USA003947

PATIENT
  Sex: 0

DRUGS (6)
  1. FOSAMAX [Suspect]
     Indication: OSTEOPENIA
     Dosage: 70 MG, QW
     Route: 048
     Dates: end: 2010
  2. FOSAMAX [Suspect]
     Indication: OSTEOPOROSIS
     Dosage: UNK
     Route: 048
     Dates: start: 1999, end: 2010
  3. FOSAMAX [Suspect]
     Indication: OSTEOPENIA
     Dosage: UNK
     Route: 048
  4. FOSAMAX [Suspect]
     Indication: OSTEOPOROSIS
  5. CALCIUM (UNSPECIFIED) (+) VITAMIN D (UNSPECIFIED) [Concomitant]
     Dosage: 1500 MG, QD
     Dates: start: 1993
  6. PAROXETINE [Concomitant]
     Indication: ANXIETY

REACTIONS (35)
  - Femur fracture [Unknown]
  - Intramedullary rod insertion [Unknown]
  - Fracture nonunion [Unknown]
  - Intramedullary rod insertion [Unknown]
  - Medical device removal [Unknown]
  - Femur fracture [Unknown]
  - Femur fracture [Unknown]
  - Low turnover osteopathy [Unknown]
  - Gait disturbance [Unknown]
  - Limb asymmetry [Unknown]
  - Decreased appetite [Unknown]
  - Hypertension [Unknown]
  - Hypercholesterolaemia [Unknown]
  - Bursitis [Unknown]
  - Anxiety [Unknown]
  - Inflammation [Unknown]
  - Balance disorder [Unknown]
  - Myoclonus [Unknown]
  - Spondylolisthesis [Unknown]
  - Palpitations [Unknown]
  - Nocturia [Unknown]
  - Depression [Unknown]
  - Spinal osteoarthritis [Not Recovered/Not Resolved]
  - Cartilage injury [Unknown]
  - Osteosclerosis [Unknown]
  - Osteoarthritis [Unknown]
  - Mitral valve prolapse [Unknown]
  - Weight decreased [Unknown]
  - Fatigue [Unknown]
  - Transfusion [Unknown]
  - Decreased appetite [Unknown]
  - Pain in extremity [Unknown]
  - Asthenia [Unknown]
  - Dysphagia [Unknown]
  - Gastrooesophageal reflux disease [Unknown]
